FAERS Safety Report 6398209-3 (Version None)
Quarter: 2009Q4

REPORT INFORMATION
  Report Type: 
  Country: None (occurrence: None)
  Receive Date: 20091013
  Receipt Date: 20090929
  Transmission Date: 20100525
  Serious: Yes (Other)
  Sender: FDA-Public Use
  Company Number: PHEH2009US12552

PATIENT
  Sex: Female

DRUGS (1)
  1. GENTEAL (NVO) [Suspect]

REACTIONS (3)
  - BURNING SENSATION [None]
  - INSTILLATION SITE FOREIGN BODY SENSATION [None]
  - VISUAL IMPAIRMENT [None]
